FAERS Safety Report 4321047-X (Version None)
Quarter: 2004Q1

REPORT INFORMATION
  Report Type: 
  Country: None (occurrence: None)
  Receive Date: 20040322
  Receipt Date: 20040219
  Transmission Date: 20041129
  Serious: Yes (Hospitalization)
  Sender: FDA-Public Use
  Company Number: PHRM2004FR00957

PATIENT
  Age: 869 Year
  Sex: Female
  Weight: 46 kg

DRUGS (6)
  1. AREDIA [Suspect]
     Indication: OSTEITIS DEFORMANS
     Dosage: 60 MG, ONCE/SINGLE
     Route: 042
     Dates: start: 20040110, end: 20040110
  2. DURAGESIC [Suspect]
     Indication: PAIN
     Dosage: 25 UG EVERY 72 HOURS
     Route: 062
     Dates: start: 20040101, end: 20040101
  3. COTAREG ^NOVARTIS^ [Concomitant]
     Indication: HYPERTENSION
     Dosage: 1 DF, QD
     Route: 048
  4. HYPERIUM [Concomitant]
     Dosage: 2 DF DAILY
  5. ANAFRANIL [Concomitant]
     Dosage: 10 MG, QD
     Dates: start: 20031229, end: 20040111
  6. SPASMOSEDINE ^PHARMETHIC^ [Concomitant]
     Dosage: 3 DF DAILY
     Route: 048

REACTIONS (2)
  - ACUTE PSYCHOSIS [None]
  - DELUSION [None]
